FAERS Safety Report 20905438 (Version 1)
Quarter: 2022Q2

REPORT INFORMATION
  Report Type: Spontaneous
  Country: PT (occurrence: None)
  Receive Date: 20220602
  Receipt Date: 20220602
  Transmission Date: 20220721
  Serious: Yes (Other)
  Sender: FDA-Public Use
  Company Number: 2022A196879

PATIENT
  Age: 63 Year
  Sex: Female

DRUGS (5)
  1. IMFINZI [Suspect]
     Active Substance: DURVALUMAB
     Indication: Lung adenocarcinoma
     Route: 042
     Dates: start: 20211021
  2. XIGDUO XR [Concomitant]
     Active Substance: DAPAGLIFLOZIN PROPANEDIOL\METFORMIN HYDROCHLORIDE
     Dosage: 1000MG + 5MG
     Route: 048
  3. MONTELUKAST [Concomitant]
     Active Substance: MONTELUKAST SODIUM
     Route: 048
  4. ENALAPRIL\LERCANIDIPINE [Concomitant]
     Active Substance: ENALAPRIL\LERCANIDIPINE
     Dosage: 10MG + 10MG
     Route: 048
  5. EZETIMIBE\ROSUVASTATIN [Concomitant]
     Active Substance: EZETIMIBE\ROSUVASTATIN
     Dosage: 10MG + 10MG
     Route: 048

REACTIONS (4)
  - Hypothyroidism [Not Recovered/Not Resolved]
  - Arthralgia [Recovered/Resolved]
  - Myalgia [Recovered/Resolved]
  - Thrombocytosis [Not Recovered/Not Resolved]

NARRATIVE: CASE EVENT DATE: 20211021
